FAERS Safety Report 12171851 (Version 1)
Quarter: 2016Q1

REPORT INFORMATION
  Report Type: Spontaneous
  Country: US (occurrence: US)
  Receive Date: 20160311
  Receipt Date: 20160311
  Transmission Date: 20160526
  Serious: No
  Sender: FDA-Public Use
  Company Number: US-GALDERMA-US16000396

PATIENT
  Age: 71 Year
  Sex: Female

DRUGS (11)
  1. BLISS FACIAL CLEANSER [Concomitant]
     Indication: THERAPEUTIC SKIN CARE TOPICAL
     Route: 061
     Dates: start: 2006
  2. SIMVASTIN [Concomitant]
     Active Substance: SIMVASTATIN
     Indication: BLOOD CHOLESTEROL
     Dosage: 20 MG
     Route: 048
  3. LISINOPRIL. [Concomitant]
     Active Substance: LISINOPRIL
     Indication: HYPERTENSION
     Dosage: 10 MG
     Route: 048
  4. CALCIUM [Concomitant]
     Active Substance: CALCIUM
  5. DAILY VITAMIN [Concomitant]
     Active Substance: VITAMINS
     Route: 048
  6. FISH OIL [Concomitant]
     Active Substance: FISH OIL
     Route: 048
  7. MAKE UP [Concomitant]
     Route: 061
  8. RALOXIFENE HCL [Concomitant]
     Active Substance: RALOXIFENE
     Indication: BONE DISORDER
     Dosage: 60 MG
     Route: 048
  9. PONDS FACE CREAM [Concomitant]
     Route: 061
  10. MIRVASO [Suspect]
     Active Substance: BRIMONIDINE TARTRATE
     Indication: ROSACEA
     Dosage: 0.33%
     Route: 061
     Dates: start: 20151228, end: 20151230
  11. MIRVASO [Suspect]
     Active Substance: BRIMONIDINE TARTRATE
     Indication: ROSACEA
     Dosage: 0.33%
     Route: 061
     Dates: start: 20151215, end: 20151222

REACTIONS (5)
  - Skin burning sensation [Recovered/Resolved]
  - Feeling hot [Recovered/Resolved]
  - Rebound effect [Recovered/Resolved]
  - Flushing [Recovered/Resolved]
  - Erythema [Recovered/Resolved]

NARRATIVE: CASE EVENT DATE: 201512
